FAERS Safety Report 8970838 (Version 1)
Quarter: 2012Q4

REPORT INFORMATION
  Report Type: 
  Country: US (occurrence: US)
  Receive Date: 20121218
  Receipt Date: 20121218
  Transmission Date: 20130627
  Serious: No
  Sender: FDA-Public Use
  Company Number: US-PFIZER INC-2012309572

PATIENT
  Sex: Female

DRUGS (2)
  1. ADVIL [Suspect]
     Indication: POSTOPERATIVE CARE
     Dosage: UNK
  2. IBUPROFEN [Suspect]
     Indication: POSTOPERATIVE CARE
     Dosage: 800 mg, UNK

REACTIONS (1)
  - Eye oedema [Unknown]
